FAERS Safety Report 9090950 (Version 1)
Quarter: 2013Q1

REPORT INFORMATION
  Report Type: Spontaneous
  Country: US (occurrence: US)
  Receive Date: 20130201
  Receipt Date: 20130201
  Transmission Date: 20140127
  Serious: Yes (Death)
  Sender: FDA-Public Use
  Company Number: US-ABBOTT-12P-163-1018776-00

PATIENT
  Age: 58 Year
  Sex: Female
  Weight: 89.89 kg

DRUGS (4)
  1. HUMIRA [Suspect]
     Indication: RHEUMATOID ARTHRITIS
     Dosage: DURATION: 3 MONTHS
     Dates: start: 201203, end: 20121022
  2. PREDNISONE [Concomitant]
     Indication: RHEUMATOID ARTHRITIS
     Dates: start: 20121022
  3. IBUPROFEN [Concomitant]
     Indication: PRODUCT USED FOR UNKNOWN INDICATION
  4. REQUIP [Concomitant]
     Indication: RESTLESS LEGS SYNDROME

REACTIONS (2)
  - Cardiac arrest [Fatal]
  - Dyspnoea [Recovered/Resolved]
